FAERS Safety Report 9245203 (Version 1)
Quarter: 2013Q2

REPORT INFORMATION
  Report Type: Spontaneous
  Country: US (occurrence: US)
  Receive Date: 20130422
  Receipt Date: 20130422
  Transmission Date: 20140414
  Serious: No
  Sender: FDA-Public Use
  Company Number: US-009507513-1304USA009892

PATIENT
  Age: 88 Year
  Sex: Female

DRUGS (2)
  1. JANUVIA [Suspect]
     Indication: TYPE 2 DIABETES MELLITUS
     Dosage: 1 TIME DAILY, 1000 MG
     Route: 048
     Dates: start: 201204
  2. HYDROCHLOROTHIAZIDE (+) LOSARTAN POTASSIUM [Concomitant]

REACTIONS (2)
  - Local swelling [Unknown]
  - Pain in extremity [Unknown]
